FAERS Safety Report 24313630 (Version 3)
Quarter: 2024Q3

REPORT INFORMATION
  Report Type: Spontaneous
  Country: JP (occurrence: JP)
  Receive Date: 20240912
  Receipt Date: 20240920
  Transmission Date: 20241016
  Serious: Yes (Hospitalization, Other)
  Sender: PFIZER
  Company Number: JP-MLMSERVICE-20240903-PI175566-00255-1

PATIENT
  Age: 63 Year
  Sex: Male
  Weight: 73 kg

DRUGS (3)
  1. PACLITAXEL [Suspect]
     Active Substance: PACLITAXEL
     Indication: Lung squamous cell carcinoma stage II
     Dosage: PACLITAXEL (200 MG/M2 ) EVERY 3 WEEKS FROM JUNE TO AUGUST OF YEAR X, FOR A TOTAL OF 3 COURSES
  2. NIVOLUMAB [Suspect]
     Active Substance: NIVOLUMAB
     Indication: Lung squamous cell carcinoma stage II
     Dosage: 360 MG/BODY, EVERY 3 WEEKS FROM JUNE TO AUGUST OF YEAR X, FOR A TOTAL OF 3 COURSES
  3. CARBOPLATIN [Suspect]
     Active Substance: CARBOPLATIN
     Indication: Lung squamous cell carcinoma stage II
     Dosage: CARBOPLATIN AUC 5, EVERY 3 WEEKS FROM JUNE TO AUGUST OF YEAR X, FOR A TOTAL OF 3 COURSES

REACTIONS (3)
  - Pleurisy [Recovered/Resolved]
  - Pleural effusion [Recovered/Resolved]
  - Liver injury [Recovering/Resolving]
